FAERS Safety Report 10233677 (Version 3)
Quarter: 2014Q3

REPORT INFORMATION
  Report Type: Spontaneous
  Country: JP (occurrence: JP)
  Receive Date: 20140612
  Receipt Date: 20140715
  Transmission Date: 20150326
  Serious: Yes (Hospitalization)
  Sender: FDA-Public Use
  Company Number: JP-OTSUKA-JP-2014-14554

PATIENT
  Age: 85 Year
  Sex: Female

DRUGS (24)
  1. SAMSCA [Suspect]
     Active Substance: TOLVAPTAN
     Indication: CARDIAC FAILURE
     Dosage: 3.75 MG MILLIGRAM(S), DAILY DOSE
     Route: 048
     Dates: start: 20140415, end: 20140519
  2. ISALON [Concomitant]
     Active Substance: UNSPECIFIED INGREDIENT
     Dosage: 200 MG MILLIGRAM(S), DAILY DOSE
     Route: 048
     Dates: end: 20140519
  3. ALDACTONE [Concomitant]
     Active Substance: SPIRONOLACTONE
     Dosage: UNK
     Route: 048
  4. HEAVY MAGNESIUM OXIDE [Concomitant]
     Dosage: 2 G GRAM(S), DAILY DOSE
     Route: 048
  5. PURSENID [Concomitant]
     Dosage: 36 MG MILLIGRAM(S), DAILY DOSE
     Route: 048
  6. THEO-DUR [Concomitant]
     Active Substance: THEOPHYLLINE
     Dosage: 200 MG MILLIGRAM(S), DAILY DOSE
     Route: 048
  7. ADALAT [Concomitant]
     Active Substance: NIFEDIPINE
     Dosage: 40 MG MILLIGRAM(S), DAILY DOSE
     Route: 048
  8. LEVEMIR [Concomitant]
     Active Substance: INSULIN DETEMIR
     Dosage: 8 IU, DAILY DOSE
     Route: 058
  9. YOKUKANSAN [Concomitant]
     Active Substance: HERBALS
     Dosage: 3 DF DOSAGE FORM, DAILY DOSE
     Route: 048
     Dates: end: 20140519
  10. MOHRUS [Concomitant]
     Active Substance: KETOPROFEN
     Dosage: UNK
     Route: 061
  11. CELECOX [Concomitant]
     Active Substance: CELECOXIB
     Dosage: 200 MG MILLIGRAM(S), DAILY DOSE
     Route: 048
     Dates: end: 20140519
  12. MYONAL (MYO) [Concomitant]
     Dosage: 100 MG MILLIGRAM(S), DAILY DOSE
     Route: 048
     Dates: end: 20140519
  13. ARICEPT [Concomitant]
     Active Substance: DONEPEZIL HYDROCHLORIDE
     Dosage: UNK
     Route: 048
  14. VOLTAREN COLIRIO [Concomitant]
     Active Substance: DICLOFENAC SODIUM
     Dosage: UNK
     Route: 061
  15. BAYASPIRIN [Concomitant]
     Active Substance: ASPIRIN
     Dosage: UNK
     Route: 048
  16. NU-LOTAN [Concomitant]
     Active Substance: LOSARTAN POTASSIUM
     Dosage: 50 MG MILLIGRAM(S), DAILY DOSE
     Route: 048
  17. GASTER [Concomitant]
     Active Substance: FAMOTIDINE
     Dosage: 20 MG MILLIGRAM(S), QOD
     Route: 048
  18. METGLUCO [Concomitant]
     Active Substance: METFORMIN HYDROCHLORIDE
     Dosage: 750 MG MILLIGRAM(S), DAILY DOSE
     Route: 048
     Dates: end: 20140519
  19. GASTER [Concomitant]
     Active Substance: FAMOTIDINE
     Dosage: 20 MG MILLIGRAM(S), DAILY DOSE
     Route: 048
  20. LENDORMIN [Concomitant]
     Active Substance: BROTIZOLAM
     Dosage: 25 MG MILLIGRAM(S), DAILY DOSE
     Route: 048
  21. LASIX M [Concomitant]
     Active Substance: FUROSEMIDE
     Dosage: 20 MG MILLIGRAM(S), DAILY DOSE
     Route: 048
     Dates: end: 20140519
  22. ITOROL [Concomitant]
     Active Substance: ISOSORBIDE MONONITRATE
     Dosage: 40 MG MILLIGRAM(S), DAILY DOSE
     Route: 048
  23. BAKTAR [Suspect]
     Active Substance: SULFAMETHOXAZOLE\TRIMETHOPRIM
     Indication: PRODUCT USED FOR UNKNOWN INDICATION
     Dosage: 2 DF DOSAGE FORM, DAILY DOSE
     Route: 048
     Dates: start: 20140513, end: 20140519
  24. VOLTAREN COLIRIO [Concomitant]
     Active Substance: DICLOFENAC SODIUM
     Indication: PAIN
     Dosage: UNK, PRN
     Route: 054
     Dates: end: 20140519

REACTIONS (2)
  - Urinary tract infection [None]
  - Renal disorder [Recovering/Resolving]

NARRATIVE: CASE EVENT DATE: 20140519
